FAERS Safety Report 18633073 (Version 2)
Quarter: 2021Q1

REPORT INFORMATION
  Report Type: Spontaneous
  Country: AT (occurrence: AT)
  Receive Date: 20201218
  Receipt Date: 20210113
  Transmission Date: 20210419
  Serious: Yes (Other)
  Sender: FDA-Public Use
  Company Number: AT-TEVA-2020-AT-1861142

PATIENT
  Age: 64 Year
  Sex: Male

DRUGS (18)
  1. VINCRISTINE [Suspect]
     Active Substance: VINCRISTINE
     Indication: DIFFUSE LARGE B-CELL LYMPHOMA
     Dosage: (8XR?CHOP14 TO 04/07)
     Route: 065
     Dates: start: 200704
  2. PREDNISONE. [Suspect]
     Active Substance: PREDNISONE
     Indication: DIFFUSE LARGE B-CELL LYMPHOMA
     Dosage: . (8XR?CHOP14 TO 04/07)
     Route: 065
     Dates: start: 200704
  3. IFOSFAMIDE. [Suspect]
     Active Substance: IFOSFAMIDE
     Indication: DIFFUSE LARGE B-CELL LYMPHOMA
     Dosage: (3X R?ICE)
     Route: 065
     Dates: start: 201007, end: 201009
  4. ETOPOSIDE. [Suspect]
     Active Substance: ETOPOSIDE
     Route: 065
     Dates: start: 20201018
  5. BENDAMUSTINE HYDROCHLORIDE. [Suspect]
     Active Substance: BENDAMUSTINE HYDROCHLORIDE
     Indication: PRODUCT USED FOR UNKNOWN INDICATION
     Dosage: (R?BENDAMUSTINE)
     Route: 042
     Dates: start: 201405
  6. MELPHALAN. [Suspect]
     Active Substance: MELPHALAN
     Indication: DIFFUSE LARGE B-CELL LYMPHOMA
     Route: 065
     Dates: start: 20201018
  7. CISPLATIN. [Suspect]
     Active Substance: CISPLATIN
     Indication: DIFFUSE LARGE B-CELL LYMPHOMA
     Dosage: (R?DHAP)
     Route: 065
     Dates: start: 201209, end: 201211
  8. CYTARABINE. [Suspect]
     Active Substance: CYTARABINE
     Indication: DIFFUSE LARGE B-CELL LYMPHOMA
     Dosage: . (R?DHAP)
     Route: 065
     Dates: start: 201209, end: 201211
  9. DEXAMETHASONE. [Suspect]
     Active Substance: DEXAMETHASONE
     Indication: DIFFUSE LARGE B-CELL LYMPHOMA
     Dosage: . (R?DHAP)
     Route: 065
     Dates: start: 201209, end: 201211
  10. CARMUSTINE. [Suspect]
     Active Substance: CARMUSTINE
     Indication: DIFFUSE LARGE B-CELL LYMPHOMA
     Route: 065
     Dates: start: 20201018
  11. RITUXIMAB. [Suspect]
     Active Substance: RITUXIMAB
     Dosage: (R?DHAP)
     Route: 058
     Dates: start: 20120901
  12. RITUXIMAB. [Suspect]
     Active Substance: RITUXIMAB
     Dosage: (R?BENDAMUSTINE)
     Route: 058
     Dates: start: 20140501
  13. DOXORUBICIN HYDROCHLORIDE. [Suspect]
     Active Substance: DOXORUBICIN HYDROCHLORIDE
     Indication: DIFFUSE LARGE B-CELL LYMPHOMA
     Dosage: (8XR?CHOP14 TO 04/07)
     Route: 065
     Dates: start: 200704
  14. CYCLOPHOSPHAMIDE. [Suspect]
     Active Substance: CYCLOPHOSPHAMIDE
     Indication: DIFFUSE LARGE B-CELL LYMPHOMA
     Dosage: . (8XR?CHOP14 TO 04/07)
     Route: 065
     Dates: start: 200704
  15. RITUXIMAB. [Suspect]
     Active Substance: RITUXIMAB
     Indication: DIFFUSE LARGE B-CELL LYMPHOMA
     Dosage: (3X R?ICE).
     Route: 058
     Dates: start: 20100701
  16. CARBOPLATIN. [Suspect]
     Active Substance: CARBOPLATIN
     Indication: DIFFUSE LARGE B-CELL LYMPHOMA
     Dosage: (3X R?ICE)
     Route: 065
     Dates: start: 201007, end: 201009
  17. ETOPOSIDE. [Suspect]
     Active Substance: ETOPOSIDE
     Indication: DIFFUSE LARGE B-CELL LYMPHOMA
     Dosage: (3X R?ICE)
     Route: 065
     Dates: start: 201007, end: 201009
  18. CYTARABINE. [Suspect]
     Active Substance: CYTARABINE
     Route: 065
     Dates: start: 20201018

REACTIONS (1)
  - B-cell lymphoma recurrent [Unknown]
